FAERS Safety Report 7269616-1 (Version None)
Quarter: 2011Q1

REPORT INFORMATION
  Report Type: 
  Country: None (occurrence: None)
  Receive Date: 20110124
  Receipt Date: 20110110
  Transmission Date: 20110831
  Serious: No
  Sender: FDA-Public Use
  Company Number: SPI201100005

PATIENT
  Age: 67 Year
  Sex: Female
  Weight: 68.5 kg

DRUGS (9)
  1. AMITIZA [Suspect]
     Indication: CONSTIPATION
     Dosage: 16 MCG, BID, ORAL, 8 MCG BID ORAL; 8 MCG, BID ORAL;
     Route: 048
     Dates: start: 20110101
  2. AMITIZA [Suspect]
     Indication: FLATULENCE
     Dosage: 16 MCG, BID, ORAL, 8 MCG BID ORAL; 8 MCG, BID ORAL;
     Route: 048
     Dates: start: 20110101
  3. AMITIZA [Suspect]
     Indication: CONSTIPATION
     Dosage: 16 MCG, BID, ORAL, 8 MCG BID ORAL; 8 MCG, BID ORAL;
     Route: 048
     Dates: start: 20101101, end: 20101201
  4. AMITIZA [Suspect]
     Indication: FLATULENCE
     Dosage: 16 MCG, BID, ORAL, 8 MCG BID ORAL; 8 MCG, BID ORAL;
     Route: 048
     Dates: start: 20101101, end: 20101201
  5. AMITIZA [Suspect]
     Indication: CONSTIPATION
     Dosage: 16 MCG, BID, ORAL, 8 MCG BID ORAL; 8 MCG, BID ORAL;
     Route: 048
     Dates: start: 20101201, end: 20110101
  6. AMITIZA [Suspect]
     Indication: FLATULENCE
     Dosage: 16 MCG, BID, ORAL, 8 MCG BID ORAL; 8 MCG, BID ORAL;
     Route: 048
     Dates: start: 20101201, end: 20110101
  7. COUMADIN [Suspect]
     Indication: ANTICOAGULANT THERAPY
     Dosage: 2 TO 4 MG, QD, ORAL
     Route: 048
     Dates: start: 20101101
  8. COUMADIN [Suspect]
     Indication: THROMBOSIS PROPHYLAXIS
     Dosage: 2 TO 4 MG, QD, ORAL
     Route: 048
     Dates: start: 20101101
  9. AMITIZA [Suspect]
     Dosage: 8 MCG BID ORAL;
     Route: 048
     Dates: start: 20110114, end: 20110114

REACTIONS (5)
  - HEADACHE [None]
  - NECK PAIN [None]
  - PRODUCT QUALITY ISSUE [None]
  - HYPOAESTHESIA [None]
  - DYSPNOEA [None]
